FAERS Safety Report 18941925 (Version 1)
Quarter: 2021Q1

REPORT INFORMATION
  Report Type: Report from Study
  Country: US (occurrence: US)
  Receive Date: 20210225
  Receipt Date: 20210225
  Transmission Date: 20210420
  Serious: Yes (Hospitalization)
  Sender: FDA-Public Use
  Company Number: US-TAKEDA-2021TUS007404

PATIENT
  Sex: Female

DRUGS (8)
  1. TEDUGLUTIDE [Suspect]
     Active Substance: TEDUGLUTIDE
     Indication: PRODUCT USED FOR UNKNOWN INDICATION
     Dosage: 0.309 MILLILITER, QD
     Route: 050
     Dates: start: 20210129
  2. TEDUGLUTIDE [Suspect]
     Active Substance: TEDUGLUTIDE
     Dosage: 0.309 MILLILITER, QD
     Route: 058
     Dates: start: 20210129
  3. TEDUGLUTIDE [Suspect]
     Active Substance: TEDUGLUTIDE
     Indication: PRODUCT USED FOR UNKNOWN INDICATION
     Dosage: 0.309 MILLILITER, QD
     Route: 050
     Dates: start: 20210129
  4. TEDUGLUTIDE [Suspect]
     Active Substance: TEDUGLUTIDE
     Indication: PRODUCT USED FOR UNKNOWN INDICATION
     Dosage: 0.309 MILLILITER, QD
     Route: 050
     Dates: start: 20210129
  5. TEDUGLUTIDE [Suspect]
     Active Substance: TEDUGLUTIDE
     Indication: PRODUCT USED FOR UNKNOWN INDICATION
     Dosage: 0.309 MILLILITER, QD
     Route: 050
     Dates: start: 20210129
  6. TEDUGLUTIDE [Suspect]
     Active Substance: TEDUGLUTIDE
     Dosage: 0.309 MILLILITER, QD
     Route: 058
     Dates: start: 20210129
  7. TEDUGLUTIDE [Suspect]
     Active Substance: TEDUGLUTIDE
     Dosage: 0.309 MILLILITER, QD
     Route: 058
     Dates: start: 20210129
  8. TEDUGLUTIDE [Suspect]
     Active Substance: TEDUGLUTIDE
     Dosage: 0.309 MILLILITER, QD
     Route: 058
     Dates: start: 20210129

REACTIONS (5)
  - Fatigue [Not Recovered/Not Resolved]
  - Dizziness [Unknown]
  - Nervousness [Unknown]
  - Muscle spasms [Unknown]
  - Hospitalisation [Unknown]
